FAERS Safety Report 11785787 (Version 1)
Quarter: 2015Q4

REPORT INFORMATION
  Report Type: Spontaneous
  Country: US (occurrence: None)
  Receive Date: 20151125
  Receipt Date: 20151125
  Transmission Date: 20160305
  Serious: Yes (Disabling)
  Sender: FDA-Public Use
  Company Number: None

PATIENT
  Age: 72 Year
  Sex: Female
  Weight: 72.58 kg

DRUGS (2)
  1. ABILIFY [Concomitant]
     Active Substance: ARIPIPRAZOLE
  2. SEROQUEL [Suspect]
     Active Substance: QUETIAPINE FUMARATE
     Indication: DEPRESSION
     Dosage: MORE THAN 3 YEARS
     Route: 048

REACTIONS (6)
  - Choreoathetosis [None]
  - Mental disorder [None]
  - Resting tremor [None]
  - Tremor [None]
  - Dyskinesia [None]
  - Jaw disorder [None]

NARRATIVE: CASE EVENT DATE: 20151110
